FAERS Safety Report 15699681 (Version 1)
Quarter: 2018Q4

REPORT INFORMATION
  Report Type: Spontaneous
  Country: US (occurrence: US)
  Receive Date: 20181207
  Receipt Date: 20181207
  Transmission Date: 20190205
  Serious: No
  Sender: FDA-Public Use
  Company Number: PHEH2018US050437

PATIENT

DRUGS (2)
  1. TEGRETOL [Suspect]
     Active Substance: CARBAMAZEPINE
     Indication: PRODUCT USED FOR UNKNOWN INDICATION
     Route: 065
  2. CARBAMAZEPINE. [Suspect]
     Active Substance: CARBAMAZEPINE
     Indication: PRODUCT USED FOR UNKNOWN INDICATION
     Route: 065

REACTIONS (1)
  - Drug intolerance [Unknown]
